FAERS Safety Report 7737659-7 (Version None)
Quarter: 2011Q3

REPORT INFORMATION
  Report Type: 
  Country: None (occurrence: None)
  Receive Date: 20110908
  Receipt Date: 20110906
  Transmission Date: 20111222
  Serious: No
  Sender: FDA-Public Use
  Company Number: US-TEVA-299526USA

PATIENT
  Sex: Female
  Weight: 88.984 kg

DRUGS (1)
  1. PROAIR HFA [Suspect]
     Indication: ASTHMA
     Dosage: 180 MICROGRAM; AND PRN
     Route: 055
     Dates: start: 20100901, end: 20110801

REACTIONS (2)
  - DRUG INEFFECTIVE [None]
  - FATIGUE [None]
